FAERS Safety Report 9711048 (Version 1)
Quarter: 2013Q4

REPORT INFORMATION
  Report Type: Spontaneous
  Country: US (occurrence: US)
  Receive Date: 20131126
  Receipt Date: 20131126
  Transmission Date: 20140711
  Serious: Yes (Hospitalization)
  Sender: FDA-Public Use
  Company Number: US-ASTRAZENECA-2013SE85120

PATIENT
  Age: 65 Year
  Sex: Female

DRUGS (2)
  1. BRILINTA [Suspect]
     Indication: STENT PLACEMENT
     Route: 048
  2. ASPIRIN [Concomitant]
     Dosage: LOW DOSE

REACTIONS (2)
  - Thrombosis in device [Not Recovered/Not Resolved]
  - Myocardial infarction [Not Recovered/Not Resolved]
